FAERS Safety Report 5049702-7 (Version None)
Quarter: 2006Q3

REPORT INFORMATION
  Report Type: 
  Country: None (occurrence: None)
  Receive Date: 20060707
  Receipt Date: 20060615
  Transmission Date: 20061208
  Serious: Yes (Other)
  Sender: FDA-Public Use
  Company Number: 2005US000222

PATIENT
  Sex: Female

DRUGS (3)
  1. PROTOPIC [Suspect]
     Indication: ECZEMA
     Dosage: TOPICAL
     Route: 061
     Dates: end: 20030101
  2. DIPROLENE CREAM (BETAMETHASONE DIPROPIONATE) [Concomitant]
  3. ELIDEL [Concomitant]

REACTIONS (1)
  - T-CELL LYMPHOMA [None]
